FAERS Safety Report 6860332-4 (Version None)
Quarter: 2010Q3

REPORT INFORMATION
  Report Type: 
  Country: None (occurrence: None)
  Receive Date: 20100720
  Receipt Date: 20100630
  Transmission Date: 20110219
  Serious: Yes (Other)
  Sender: FDA-Public Use
  Company Number: PHHY2010JP43203

PATIENT
  Sex: Female
  Weight: 50 kg

DRUGS (2)
  1. DIOVAN [Suspect]
     Dosage: 80 MG, QD
     Route: 048
     Dates: start: 20090608
  2. ADALAT [Concomitant]
     Indication: HYPERTENSION
     Dosage: 20 MG
     Route: 048
     Dates: start: 20071126

REACTIONS (2)
  - ANAEMIA [None]
  - GASTRIC CANCER [None]
